FAERS Safety Report 4597697-2 (Version None)
Quarter: 2005Q1

REPORT INFORMATION
  Report Type: 
  Country: None (occurrence: None)
  Receive Date: 20050303
  Receipt Date: 20041029
  Transmission Date: 20050727
  Serious: Yes (Hospitalization, Disabling)
  Sender: FDA-Public Use
  Company Number: DE-ABBOTT-04P-062-0279629-00

PATIENT
  Sex: Female
  Weight: 85 kg

DRUGS (12)
  1. HUMIRA [Suspect]
     Indication: RHEUMATOID ARTHRITIS
     Route: 058
     Dates: start: 20040101, end: 20040927
  2. PREDNISOLONE [Suspect]
     Indication: RHEUMATOID ARTHRITIS
     Route: 048
     Dates: start: 19900101
  3. METHOTREXATE [Suspect]
     Indication: RHEUMATOID ARTHRITIS
     Route: 030
     Dates: start: 19930801, end: 20040927
  4. METHOTREXATE [Suspect]
     Route: 030
     Dates: start: 20050120
  5. CIPROFLOXACIN HYDROCHLORIDE [Suspect]
     Indication: UROSEPSIS
     Route: 048
     Dates: start: 20040813, end: 20040825
  6. CIPROFLOXACIN HYDROCHLORIDE [Suspect]
     Indication: ESCHERICHIA URINARY TRACT INFECTION
     Route: 048
     Dates: start: 20041001, end: 20041001
  7. CIPROFLOXACIN HYDROCHLORIDE [Suspect]
     Indication: PYREXIA
  8. METOPROLOL SUCCINATE [Concomitant]
     Indication: DRUG USE FOR UNKNOWN INDICATION
     Route: 048
  9. RAMIPRIL [Concomitant]
     Indication: DRUG USE FOR UNKNOWN INDICATION
     Route: 048
  10. ATORVASTATIN CALCIUM [Concomitant]
     Indication: HYPERLIPIDAEMIA
     Route: 048
  11. METFORMIN HCL [Concomitant]
     Indication: DIABETES MELLITUS
     Route: 048
  12. PHENPROCOUMON [Concomitant]
     Indication: FACTOR V LEIDEN MUTATION
     Route: 048

REACTIONS (5)
  - ESCHERICHIA URINARY TRACT INFECTION [None]
  - GLOMERULONEPHRITIS [None]
  - HENOCH-SCHONLEIN PURPURA [None]
  - PYREXIA [None]
  - UROSEPSIS [None]
